FAERS Safety Report 4996206-3 (Version None)
Quarter: 2006Q2

REPORT INFORMATION
  Report Type: 
  Country: None (occurrence: None)
  Receive Date: 20060504
  Receipt Date: 20060420
  Transmission Date: 20061013
  Serious: Yes (Death, Hospitalization, Other)
  Sender: FDA-Public Use
  Company Number: 2006BH008734

PATIENT
  Age: 59 Year
  Sex: Male
  Weight: 50 kg

DRUGS (12)
  1. EXTRANEAL [Suspect]
     Indication: RENAL FAILURE CHRONIC
     Dosage: 2000 ML; EVERYDAY;IP
     Route: 033
     Dates: start: 20040417, end: 20051107
  2. CEFAZOLIN SODIUM [Concomitant]
  3. DIANEAL-N PD-4 1.5 [Concomitant]
  4. CALCIUM CARBONATE [Concomitant]
  5. EPOETIN ALFA [Concomitant]
  6. POTASSIUM CHLORIDE [Concomitant]
  7. LOSARTAN POTASSIUM [Concomitant]
  8. AMIODARONE HYROCHLORIDE [Concomitant]
  9. TEPRENONE [Concomitant]
  10. ANTIBIOTICS-RESISTANT LACTIC ACID BACTERIAE [Concomitant]
  11. POLYCARBOPHIL CALCIUM [Concomitant]
  12. OMEPRAZOLE [Concomitant]

REACTIONS (3)
  - GASTROINTESTINAL NECROSIS [None]
  - HAEMODIALYSIS [None]
  - ILEUS [None]
